FAERS Safety Report 4835362-4 (Version None)
Quarter: 2005Q4

REPORT INFORMATION
  Report Type: 
  Country: None (occurrence: None)
  Receive Date: 20051114
  Receipt Date: 20051101
  Transmission Date: 20060501
  Serious: Yes (Other)
  Sender: FDA-Public Use
  Company Number: USA0511112408

PATIENT
  Age: 37 Year
  Sex: Female

DRUGS (4)
  1. CYMBALTA [Suspect]
     Indication: MAJOR DEPRESSION
     Dosage: 60 MG
     Dates: start: 20051014
  2. PYRIDIUM (PHENAZOPYRIDINE HYDROCHLORIDE) [Concomitant]
  3. ENALAPRIL [Concomitant]
  4. IBUPROFEN [Concomitant]

REACTIONS (1)
  - CONVULSION [None]
